FAERS Safety Report 7970179-3 (Version None)
Quarter: 2011Q4

REPORT INFORMATION
  Report Type: 
  Country: None (occurrence: None)
  Receive Date: 20111212
  Receipt Date: 20111129
  Transmission Date: 20120403
  Serious: Yes (Death, Other)
  Sender: FDA-Public Use
  Company Number: JP-ASTELLAS-2011US008282

PATIENT
  Sex: Male
  Weight: 70 kg

DRUGS (13)
  1. TARCEVA [Suspect]
     Indication: NON-SMALL CELL LUNG CANCER
     Dosage: 150 MG, UID/QD
     Route: 048
     Dates: start: 20110915, end: 20111005
  2. SELBEX [Concomitant]
     Indication: PRODUCT USED FOR UNKNOWN INDICATION
     Dosage: 50 MG, BID
     Route: 048
     Dates: start: 20110725, end: 20111011
  3. HUMALOG [Concomitant]
     Indication: DIABETES MELLITUS
     Dosage: 1 U, BID
     Route: 058
     Dates: start: 20111009, end: 20111011
  4. LOXOPROFEN [Suspect]
     Indication: PAIN
     Dosage: 60 MG, BID
     Route: 048
     Dates: start: 20110203, end: 20111011
  5. FAMOTIDINE [Concomitant]
     Indication: PRODUCT USED FOR UNKNOWN INDICATION
     Dosage: 20 MG, BID
     Route: 048
     Dates: start: 20111005, end: 20111011
  6. MAGNESIUM SULFATE [Concomitant]
     Indication: CONSTIPATION
     Dosage: 330 MG, TID
     Route: 048
     Dates: start: 20110816, end: 20111011
  7. JANUVIA [Concomitant]
     Indication: CONSTIPATION
     Dosage: 50 MG, UID/QD
     Route: 048
     Dates: start: 20110701, end: 20111011
  8. SENNOSIDE [Concomitant]
     Indication: CONSTIPATION
     Dosage: 12 MG, UNKNOWN/D
     Route: 048
     Dates: start: 20110816, end: 20111011
  9. OLMESARTAN MEDOXOMIL [Concomitant]
     Indication: HYPERTENSION
     Dosage: 10 MG, UID/QD
     Route: 048
     Dates: start: 20110701, end: 20111011
  10. ISODINE [Concomitant]
     Indication: PHARYNGITIS
     Dosage: UNK
     Route: 048
     Dates: start: 20110609, end: 20111011
  11. ZOLPIDEM [Concomitant]
     Indication: INSOMNIA
     Dosage: 5 MG, OTHER
     Dates: start: 20110721, end: 20111011
  12. TELEMINSOFT [Concomitant]
     Indication: CONSTIPATION
     Dosage: 10 MG, UNKNOWN/D
     Route: 065
     Dates: start: 20110816, end: 20111011
  13. HEPARIN [Concomitant]
     Indication: PRODUCT USED FOR UNKNOWN INDICATION
     Dosage: 1000 IU, BID
     Route: 042
     Dates: start: 20111008, end: 20111011

REACTIONS (8)
  - INTERSTITIAL LUNG DISEASE [None]
  - BLOOD ALKALINE PHOSPHATASE INCREASED [None]
  - DELIRIUM [None]
  - DIARRHOEA [None]
  - RESPIRATORY ARREST [None]
  - LUNG DISORDER [None]
  - ATRIAL FIBRILLATION [None]
  - RASH [None]
